FAERS Safety Report 16392946 (Version 1)
Quarter: 2019Q2

REPORT INFORMATION
  Report Type: Spontaneous
  Country: GH (occurrence: GH)
  Receive Date: 20190605
  Receipt Date: 20190605
  Transmission Date: 20190711
  Serious: Yes (Death, Life-Threatening, Hospitalization)
  Sender: FDA-Public Use
  Company Number: GH-009507513-0803USA03227

PATIENT
  Age: 5 Year
  Sex: Male
  Weight: 15 kg

DRUGS (2)
  1. ALBENDAZOLE. [Suspect]
     Active Substance: ALBENDAZOLE
     Dosage: 400 MG SINGLE DOSE
  2. IVERMECTIN. [Suspect]
     Active Substance: IVERMECTIN
     Dosage: 200 MG/KG SINGLE DOSE
     Route: 065

REACTIONS (23)
  - Toxic epidermal necrolysis [Fatal]
  - Skin lesion [Fatal]
  - Swelling [Unknown]
  - Asthenia [Fatal]
  - Pyrexia [Fatal]
  - Swelling [Fatal]
  - Lower respiratory tract infection [Fatal]
  - Crepitations [Fatal]
  - Oral disorder [Unknown]
  - Abdominal pain [Fatal]
  - Muscular weakness [Unknown]
  - Ulcer [Unknown]
  - Irritability [Fatal]
  - Abdominal distension [Fatal]
  - Dyspnoea [Fatal]
  - Loss of consciousness [Fatal]
  - Stevens-Johnson syndrome [Fatal]
  - Acute respiratory failure [Fatal]
  - Adverse drug reaction [Unknown]
  - Abscess [Fatal]
  - Respiratory distress [Fatal]
  - Mouth ulceration [Fatal]
  - Tenderness [Fatal]

NARRATIVE: CASE EVENT DATE: 20070625
